FAERS Safety Report 17402860 (Version 2)
Quarter: 2020Q1

REPORT INFORMATION
  Report Type: Spontaneous
  Country: US (occurrence: US)
  Receive Date: 20200211
  Receipt Date: 20200331
  Transmission Date: 20200409
  Serious: No
  Sender: FDA-Public Use
  Company Number: US-PFIZER INC-2020058408

PATIENT
  Age: 61 Year
  Sex: Female

DRUGS (2)
  1. PREDNISONE. [Concomitant]
     Active Substance: PREDNISONE
     Dosage: UNK, ALTERNATE DAY
  2. XELJANZ XR [Suspect]
     Active Substance: TOFACITINIB CITRATE
     Indication: RHEUMATOID ARTHRITIS
     Dosage: 11 MG, 1X/DAY
     Route: 048
     Dates: start: 201912, end: 2020

REACTIONS (5)
  - Loss of personal independence in daily activities [Unknown]
  - Arthralgia [Unknown]
  - Drug ineffective [Unknown]
  - Pain in extremity [Unknown]
  - Rash [Recovering/Resolving]
